FAERS Safety Report 7951431-4 (Version None)
Quarter: 2011Q4

REPORT INFORMATION
  Report Type: 
  Country: None (occurrence: None)
  Receive Date: 20111201
  Receipt Date: 20111122
  Transmission Date: 20120403
  Serious: Yes (Hospitalization)
  Sender: FDA-Public Use
  Company Number: US-BAYER-2010-009125

PATIENT
  Age: 15 Year
  Sex: Female
  Weight: 77.098 kg

DRUGS (4)
  1. YAZ [Suspect]
     Indication: ACNE
     Dosage: UNK
     Dates: start: 20070401, end: 20070901
  2. YAZ [Suspect]
     Indication: CONTRACEPTION
  3. DEPAKOTE [Concomitant]
     Dosage: UNK
     Dates: start: 20020101
  4. TOPAMAX [Concomitant]

REACTIONS (5)
  - INJURY [None]
  - PAIN [None]
  - THROMBOSIS [None]
  - DEEP VEIN THROMBOSIS [None]
  - PULMONARY EMBOLISM [None]
